FAERS Safety Report 18055882 (Version 2)
Quarter: 2020Q3

REPORT INFORMATION
  Report Type: Spontaneous
  Country: JP (occurrence: JP)
  Receive Date: 20200722
  Receipt Date: 20200903
  Transmission Date: 20201103
  Serious: Yes (Death)
  Sender: FDA-Public Use
  Company Number: JP-ABBVIE-20P-087-3493587-00

PATIENT
  Sex: Male

DRUGS (1)
  1. LEUPLIN SR [Suspect]
     Active Substance: LEUPROLIDE ACETATE
     Indication: PROSTATE CANCER
     Dosage: 11.25 MILLIGRAM, Q3MONTHS
     Route: 058

REACTIONS (2)
  - Pneumonia [Fatal]
  - Marasmus [Fatal]

NARRATIVE: CASE EVENT DATE: 20200710
